FAERS Safety Report 8616592-2 (Version None)
Quarter: 2012Q3

REPORT INFORMATION
  Report Type: 
  Country: None (occurrence: None)
  Receive Date: 20120823
  Receipt Date: 20120813
  Transmission Date: 20120928
  Serious: Yes (Hospitalization)
  Sender: FDA-Public Use
  Company Number: DE-TEVA-353478GER

PATIENT
  Age: 65 Year
  Sex: Female

DRUGS (1)
  1. CETIRIZINE [Suspect]
     Indication: HYPERSENSITIVITY
     Dosage: 10 MILLIGRAM DAILY;

REACTIONS (3)
  - VOMITING [None]
  - DYSKINESIA [None]
  - NAUSEA [None]
